FAERS Safety Report 9216431 (Version 1)
Quarter: 2013Q1

REPORT INFORMATION
  Report Type: Spontaneous
  Country: US (occurrence: None)
  Receive Date: 20130211
  Receipt Date: 20130211
  Transmission Date: 20140127
  Serious: Yes (Death)
  Sender: FDA-Public Use
  Company Number: UTC-028152

PATIENT
  Age: 83 Year
  Sex: Female
  Weight: 51.82 kg

DRUGS (3)
  1. TYVASO (6 MICROGRAM, AEROSOL FOR INHALATION) (TREPROSTINIL SODIUM) [Suspect]
     Indication: COR PULMONALE CHRONIC
     Dosage: 18-54 MICROGRAMS (4 IN 1 D),INHALATION
     Route: 055
     Dates: start: 20110524
  2. REVATIO (SILDENAFIL CITRATE) (UNKNOWN) [Concomitant]
  3. TRACLEER (BOSENTAN)(UNKNOWN) [Concomitant]

REACTIONS (1)
  - Pulmonary hypertension [None]
